FAERS Safety Report 10177471 (Version 1)
Quarter: 2014Q2

REPORT INFORMATION
  Report Type: Spontaneous
  Country: IN (occurrence: IN)
  Receive Date: 20140516
  Receipt Date: 20140516
  Transmission Date: 20141212
  Serious: Yes (Life-Threatening, Hospitalization)
  Sender: FDA-Public Use
  Company Number: IN-MYLANLABS-2014S1010469

PATIENT
  Age: 60 Year
  Sex: Female

DRUGS (2)
  1. OLANZAPINE [Suspect]
     Indication: PSYCHOTIC DISORDER
     Dosage: 10MG
     Route: 065
  2. VALPROATE [Suspect]
     Dosage: 500 MG/DAY
     Route: 065

REACTIONS (5)
  - Neuroleptic malignant syndrome [Recovering/Resolving]
  - Toxicity to various agents [Unknown]
  - Ammonia increased [Unknown]
  - Tachypnoea [Unknown]
  - Convulsion [Unknown]
